FAERS Safety Report 5207497-8 (Version None)
Quarter: 2007Q1

REPORT INFORMATION
  Report Type: 
  Country: None (occurrence: None)
  Receive Date: 20070112
  Receipt Date: 20070109
  Transmission Date: 20070707
  Serious: Yes (Hospitalization)
  Sender: FDA-Public Use
  Company Number: US-ROXANE LABORATORIES, INC-2007-DE-00158GD

PATIENT
  Age: 58 Year
  Sex: Female

DRUGS (5)
  1. HYDROCHLOROTHIAZIDE [Suspect]
     Indication: HYPERTENSION
  2. ATENOLOL [Suspect]
     Indication: HYPERTENSION
  3. DILTIAZEM HCL [Suspect]
     Indication: HYPERTENSION
  4. CAPTOPRIL [Suspect]
     Indication: HYPERTENSION
  5. OTHER DRUGS [Concomitant]

REACTIONS (5)
  - ASTHENIA [None]
  - BLOOD PRESSURE DECREASED [None]
  - BRADYCARDIA [None]
  - NODAL RHYTHM [None]
  - SYNCOPE [None]
